FAERS Safety Report 9172957 (Version 1)
Quarter: 2013Q1

REPORT INFORMATION
  Report Type: Report from Study
  Country: US (occurrence: US)
  Receive Date: 20130320
  Receipt Date: 20130320
  Transmission Date: 20140127
  Serious: Yes (Hospitalization)
  Sender: FDA-Public Use
  Company Number: US-ACTELION-A-US2013-78620

PATIENT
  Age: 74 Year
  Sex: Female

DRUGS (3)
  1. TRACLEER [Suspect]
     Indication: PULMONARY ARTERIAL HYPERTENSION
     Dosage: UNK
     Route: 048
  2. RIVAROXABAN [Suspect]
  3. OXYGEN [Concomitant]

REACTIONS (8)
  - Liver function test abnormal [Unknown]
  - Pneumonia [Unknown]
  - Pleural effusion [Unknown]
  - Haemoptysis [Unknown]
  - Dyspnoea [Unknown]
  - Drug hypersensitivity [Recovering/Resolving]
  - Urticaria [Recovering/Resolving]
  - Rash [Recovering/Resolving]
